FAERS Safety Report 5501486-1 (Version None)
Quarter: 2007Q4

REPORT INFORMATION
  Report Type: 
  Country: None (occurrence: None)
  Receive Date: 20071019
  Receipt Date: 20070802
  Transmission Date: 20080405
  Serious: Yes (Other)
  Sender: FDA-Public Use
  Company Number: HQWYE409007AUG07

PATIENT
  Age: 50 Year
  Sex: Male
  Weight: 63.56 kg

DRUGS (4)
  1. ADVIL PM [Suspect]
     Indication: INSOMNIA
     Dosage: ORAL  : 2 CAPLETS DAILY, ORAL
     Route: 048
     Dates: start: 20070701, end: 20070701
  2. ADVIL PM [Suspect]
     Indication: PAIN
     Dosage: ORAL  : 2 CAPLETS DAILY, ORAL
     Route: 048
     Dates: start: 20070701, end: 20070701
  3. ADVIL PM [Suspect]
     Indication: INSOMNIA
     Dosage: ORAL  : 2 CAPLETS DAILY, ORAL
     Route: 048
     Dates: start: 20070701
  4. ADVIL PM [Suspect]
     Indication: PAIN
     Dosage: ORAL  : 2 CAPLETS DAILY, ORAL
     Route: 048
     Dates: start: 20070701

REACTIONS (1)
  - MUSCLE TWITCHING [None]
